FAERS Safety Report 9998007 (Version 1)
Quarter: 2014Q1

REPORT INFORMATION
  Report Type: Spontaneous
  Country: ES (occurrence: ES)
  Receive Date: 20140311
  Receipt Date: 20140311
  Transmission Date: 20141002
  Serious: Yes (Other)
  Sender: FDA-Public Use
  Company Number: ES-ABBVIE-14P-144-1211552-00

PATIENT
  Age: 67 Year
  Sex: Female

DRUGS (1)
  1. SECALIP 145MG [Suspect]
     Indication: HYPERTRIGLYCERIDAEMIA
     Route: 065
     Dates: start: 200812, end: 2014

REACTIONS (1)
  - Renal failure chronic [Recovered/Resolved]
